FAERS Safety Report 25391755 (Version 1)
Quarter: 2025Q2

REPORT INFORMATION
  Report Type: Spontaneous
  Country: US (occurrence: US)
  Receive Date: 20250603
  Receipt Date: 20250603
  Transmission Date: 20250717
  Serious: Yes (Hospitalization, Other)
  Sender: AMGEN
  Company Number: US-AMGEN-USASP2025104822

PATIENT
  Sex: Female

DRUGS (2)
  1. PREDNISONE [Suspect]
     Active Substance: PREDNISONE
     Indication: Stem cell transplant
     Route: 065
  2. TACROLIMUS [Concomitant]
     Active Substance: TACROLIMUS

REACTIONS (13)
  - Chronic graft versus host disease in eye [Recovered/Resolved]
  - Graft versus host disease oral [Recovered/Resolved]
  - Anaemia [Recovered/Resolved]
  - Gastric antral vascular ectasia [Recovered/Resolved]
  - Chronic hepatitis [Recovered/Resolved]
  - Hepatic cirrhosis [Recovered/Resolved]
  - Graft versus host disease in liver [Recovered/Resolved]
  - Cholecystitis [Recovered/Resolved]
  - Cytopenia [Recovered/Resolved]
  - Graft versus host disease in gastrointestinal tract [Unknown]
  - Drug effective for unapproved indication [Unknown]
  - Hepatic steatosis [Recovered/Resolved]
  - Off label use [Unknown]
